FAERS Safety Report 5288547-X (Version None)
Quarter: 2007Q2

REPORT INFORMATION
  Report Type: 
  Country: None (occurrence: None)
  Receive Date: 20070405
  Receipt Date: 20070223
  Transmission Date: 20071010
  Serious: No
  Sender: FDA-Public Use
  Company Number: US-JNJFOC-20070205834

PATIENT
  Age: 4 Decade
  Sex: Female

DRUGS (3)
  1. INVEGA [Suspect]
     Indication: DRUG USE FOR UNKNOWN INDICATION
     Route: 048
  2. PREDNISONE [Concomitant]
  3. ANTIBIOTIC UNSPECIFIED [Concomitant]

REACTIONS (1)
  - SUNBURN [None]
